FAERS Safety Report 6603620-9 (Version None)
Quarter: 2010Q1

REPORT INFORMATION
  Report Type: 
  Country: None (occurrence: None)
  Receive Date: 20100226
  Receipt Date: 20091203
  Transmission Date: 20100710
  Serious: No
  Sender: FDA-Public Use
  Company Number: A0833178A

PATIENT
  Age: 28 Year
  Sex: Male

DRUGS (4)
  1. VALTREX [Suspect]
     Indication: GENITAL HERPES
     Dosage: 500MG PER DAY
     Route: 048
     Dates: start: 20071201
  2. PROVENTIL [Concomitant]
  3. VITAMIN D [Concomitant]
  4. MECLIZINE [Concomitant]

REACTIONS (1)
  - NAUSEA [None]
